FAERS Safety Report 14246580 (Version 1)
Quarter: 2017Q4

REPORT INFORMATION
  Report Type: Spontaneous
  Country: US (occurrence: US)
  Receive Date: 20171201
  Receipt Date: 20171201
  Transmission Date: 20180321
  Serious: Yes (Other)
  Sender: FDA-Public Use
  Company Number: None

PATIENT
  Age: 77 Year
  Sex: Female
  Weight: 67.5 kg

DRUGS (5)
  1. LIVALO [Suspect]
     Active Substance: PITAVASTATIN CALCIUM
     Indication: INABILITY TO AFFORD MEDICATION
     Dosage: ?          QUANTITY:7 TABLET(S);?AT BEDTIME ORAL
     Route: 048
     Dates: start: 20171005, end: 20171113
  2. VITAMIN D [Concomitant]
     Active Substance: CHOLECALCIFEROL
  3. BYSTOLIC [Concomitant]
     Active Substance: NEBIVOLOL HYDROCHLORIDE
  4. LIPITOR [Concomitant]
     Active Substance: ATORVASTATIN CALCIUM
  5. FISH OIL [Concomitant]
     Active Substance: FISH OIL

REACTIONS (8)
  - Therapy cessation [None]
  - Headache [None]
  - Vision blurred [None]
  - Speech disorder [None]
  - Drug ineffective [None]
  - Dizziness [None]
  - Mental impairment [None]
  - Hydrocephalus [None]

NARRATIVE: CASE EVENT DATE: 20171113
